FAERS Safety Report 17852364 (Version 2)
Quarter: 2020Q2

REPORT INFORMATION
  Report Type: Spontaneous
  Country: US (occurrence: US)
  Receive Date: 20200602
  Receipt Date: 20200618
  Transmission Date: 20200714
  Serious: Yes (Other)
  Sender: FDA-Public Use
  Company Number: US-ASTRAZENECA-2020SE54788

PATIENT
  Age: 27955 Day
  Sex: Female
  Weight: 65.3 kg

DRUGS (22)
  1. BIOTIN [Concomitant]
     Active Substance: BIOTIN
     Route: 048
  2. ESTRADIOL. [Concomitant]
     Active Substance: ESTRADIOL
     Indication: HORMONE REPLACEMENT THERAPY
     Dosage: 1MEQ/L DAILY
     Route: 048
  3. LOSARTAN POTASSIUM. [Concomitant]
     Active Substance: LOSARTAN POTASSIUM
     Indication: CARDIAC DISORDER
     Route: 048
  4. MULTIVITAMIN [Concomitant]
     Active Substance: VITAMINS
     Dosage: DAILY
     Route: 048
  5. ALBUTEROL SULFATE. [Concomitant]
     Active Substance: ALBUTEROL SULFATE
     Dosage: AS NEEDED
     Route: 054
  6. ROSUVASTATIN CALCIUM. [Suspect]
     Active Substance: ROSUVASTATIN CALCIUM
     Indication: CARDIAC DISORDER
     Route: 048
  7. AMLODIPINE BES+ SYRSPEND S [Concomitant]
     Indication: BLOOD PRESSURE ABNORMAL
     Route: 048
  8. TYLENO [Concomitant]
  9. FASENRA [Suspect]
     Active Substance: BENRALIZUMAB
     Indication: ASTHMA
     Dosage: 30MG/ML EVERY FOUR WEEKS
     Route: 058
     Dates: start: 20200313, end: 20200521
  10. ASPIRIN. [Concomitant]
     Active Substance: ASPIRIN
     Indication: CARDIAC DISORDER
     Route: 048
  11. POTASSIUM [Concomitant]
     Active Substance: POTASSIUM
     Indication: BLOOD POTASSIUM ABNORMAL
     Route: 048
  12. VITAMIN B12 [Concomitant]
     Active Substance: CYANOCOBALAMIN
     Indication: VITAMIN SUPPLEMENTATION
     Route: 048
  13. FASENRA [Suspect]
     Active Substance: BENRALIZUMAB
     Indication: DYSPNOEA
     Dosage: 30MG/ML EVERY FOUR WEEKS
     Route: 058
     Dates: start: 20200313, end: 20200521
  14. LEVOTHYROXINE SODIUM. [Concomitant]
     Active Substance: LEVOTHYROXINE SODIUM
     Indication: THYROID DISORDER
     Route: 048
  15. TRAZODONE HYDROCHLORIDE. [Concomitant]
     Active Substance: TRAZODONE HYDROCHLORIDE
     Indication: INSOMNIA
     Route: 048
  16. TRIAMTERENE HCTZ [Concomitant]
     Active Substance: HYDROCHLOROTHIAZIDE\TRIAMTERENE
     Indication: DIURETIC THERAPY
     Dosage: DAILY
     Route: 048
  17. MONTELUKAST SODIUM. [Concomitant]
     Active Substance: MONTELUKAST SODIUM
     Indication: ASTHMA
     Route: 048
  18. TRELEGY ELLIPTA [Concomitant]
     Active Substance: FLUTICASONE FUROATE\UMECLIDINIUM BROMIDE\VILANTEROL TRIFENATATE
     Dosage: DAILY
     Route: 055
  19. TRIAMTERENE HCTZ [Concomitant]
     Active Substance: HYDROCHLOROTHIAZIDE\TRIAMTERENE
     Indication: BLOOD PRESSURE ABNORMAL
     Dosage: DAILY
     Route: 048
  20. VENTOLIN HFA [Concomitant]
     Active Substance: ALBUTEROL SULFATE
     Indication: DRUG THERAPY
     Dosage: AS NEEDED
     Route: 054
  21. PEPCID [Concomitant]
     Active Substance: FAMOTIDINE
     Indication: GASTROOESOPHAGEAL REFLUX DISEASE
     Route: 048
  22. NEXIUM [Suspect]
     Active Substance: ESOMEPRAZOLE MAGNESIUM
     Indication: GASTROOESOPHAGEAL REFLUX DISEASE
     Route: 048

REACTIONS (7)
  - Chest discomfort [Recovered/Resolved]
  - Herpes virus infection [Unknown]
  - Multiple allergies [Unknown]
  - Gait inability [Unknown]
  - Gait disturbance [Unknown]
  - Economic problem [Unknown]
  - Dyspnoea [Not Recovered/Not Resolved]

NARRATIVE: CASE EVENT DATE: 20200408
